FAERS Safety Report 11613886 (Version 1)
Quarter: 2015Q4

REPORT INFORMATION
  Report Type: Report from Study
  Country: DE (occurrence: DE)
  Receive Date: 20151008
  Receipt Date: 20151008
  Transmission Date: 20160304
  Serious: Yes (Hospitalization, Other)
  Sender: FDA-Public Use
  Company Number: PHHY2014DE167124

PATIENT
  Sex: Male
  Weight: 83 kg

DRUGS (14)
  1. CONCOR PLUS [Concomitant]
     Active Substance: BISOPROLOL FUMARATE\HYDROCHLOROTHIAZIDE
     Indication: HYPERTENSION
     Dosage: 5 MG, QD
     Route: 065
     Dates: start: 20150927
  2. MARCUMAR [Concomitant]
     Active Substance: PHENPROCOUMON
     Indication: ATRIAL FIBRILLATION
     Dosage: ACCORDING TO THERAPY ADJUSTEMENT
     Route: 065
  3. ASPIRIN. [Concomitant]
     Active Substance: ASPIRIN
     Indication: THROMBOSIS PROPHYLAXIS
     Dosage: 100 MG, QD
     Route: 065
  4. ALDACTONE [Concomitant]
     Active Substance: SPIRONOLACTONE
     Indication: HYPERTENSION
     Dosage: 25 MG, QD
     Route: 065
  5. ALLOPURINOL-RATIOPHARM [Concomitant]
     Indication: HYPERURICAEMIA
     Dosage: 300 MG, QD
     Route: 065
  6. XANAFLU [Concomitant]
     Active Substance: INFLUENZA VIRUS VACCINE
     Indication: INFLUENZA IMMUNISATION
     Route: 065
  7. ELIQUIS [Concomitant]
     Active Substance: APIXABAN
     Indication: ATRIAL FIBRILLATION
     Dosage: 5 OT, UNK
     Route: 065
     Dates: start: 20141030
  8. SPASMEX TC [Concomitant]
     Indication: BENIGN PROSTATIC HYPERPLASIA
     Dosage: 15 MG, QD
     Route: 065
  9. VALPRO BETA [Concomitant]
     Indication: EPILEPSY
     Dosage: 300 MG, QD
     Route: 065
  10. DORZOLAMID AL [Concomitant]
     Indication: INTRAOCULAR PRESSURE INCREASED
     Dosage: 20 MG/DL, UNK
     Route: 065
  11. FUROSEMID AL [Concomitant]
     Indication: HYPERTENSION
     Dosage: 40 MG, QD
     Route: 065
     Dates: start: 20150927
  12. QVA149 [Suspect]
     Active Substance: INVESTIGATIONAL PRODUCT
     Indication: CHRONIC OBSTRUCTIVE PULMONARY DISEASE
     Dosage: 1 DF, QD (85 ?G/ 43 ?G)
     Route: 055
     Dates: start: 20140610
  13. DELIX [Concomitant]
     Active Substance: RAMIPRIL
     Indication: HYPERTENSION
     Dosage: 5 MG, QD
     Route: 065
     Dates: start: 20150927
  14. FOSTER                             /06206901/ [Concomitant]
     Indication: CHRONIC OBSTRUCTIVE PULMONARY DISEASE
     Dosage: 200 UG, QD
     Route: 055
     Dates: start: 20140927

REACTIONS (8)
  - Hypercholesterolaemia [Recovering/Resolving]
  - Coronary artery disease [Unknown]
  - Cardiac failure [Recovering/Resolving]
  - Influenza [Unknown]
  - Stress cardiomyopathy [Recovering/Resolving]
  - Left ventricular dysfunction [Unknown]
  - Intracardiac thrombus [Unknown]
  - Chlamydial infection [Unknown]

NARRATIVE: CASE EVENT DATE: 20140927
